FAERS Safety Report 18131592 (Version 1)
Quarter: 2020Q3

REPORT INFORMATION
  Report Type: Spontaneous
  Country: US (occurrence: US)
  Receive Date: 20200810
  Receipt Date: 20200810
  Transmission Date: 20201103
  Serious: Yes (Life-Threatening, Hospitalization)
  Sender: FDA-Public Use
  Company Number: US-DSJP-DSU-2020-122625

PATIENT

DRUGS (1)
  1. ENHERTU [Suspect]
     Active Substance: FAM-TRASTUZUMAB DERUXTECAN-NXKI
     Indication: HER2 POSITIVE BREAST CANCER
     Dosage: UNK
     Route: 042
     Dates: start: 202006

REACTIONS (6)
  - Thrombosis [Unknown]
  - Confusional state [Unknown]
  - Infection [Unknown]
  - Fatigue [Unknown]
  - Nausea [Unknown]
  - Dysarthria [Unknown]

NARRATIVE: CASE EVENT DATE: 2020
